FAERS Safety Report 24412870 (Version 2)
Quarter: 2024Q4

REPORT INFORMATION
  Report Type: Spontaneous
  Country: US (occurrence: US)
  Receive Date: 20241008
  Receipt Date: 20241107
  Transmission Date: 20250115
  Serious: Yes (Death, Hospitalization)
  Sender: TEVA
  Company Number: US-TEVA-VS-3251062

PATIENT
  Age: 86 Year
  Sex: Male

DRUGS (1)
  1. METOPROLOL [Suspect]
     Active Substance: METOPROLOL
     Indication: Cardiac failure
     Route: 065

REACTIONS (5)
  - BRASH syndrome [Fatal]
  - Respiratory failure [Fatal]
  - Atrioventricular block first degree [Fatal]
  - Encephalopathy [Fatal]
  - Aspiration [Fatal]
